FAERS Safety Report 13608094 (Version 8)
Quarter: 2018Q2

REPORT INFORMATION
  Report Type: Report from Study
  Country: AU (occurrence: AU)
  Receive Date: 20170602
  Receipt Date: 20180604
  Transmission Date: 20180711
  Serious: Yes (Hospitalization)
  Sender: FDA-Public Use
  Company Number: AU-SA-2017SA098145

PATIENT
  Age: 33 Year
  Sex: Male

DRUGS (2)
  1. ALEMTUZUMAB [Suspect]
     Active Substance: ALEMTUZUMAB
     Indication: MULTIPLE SCLEROSIS RELAPSE
     Dosage: 12 MG;QD
     Route: 041
     Dates: start: 20150713, end: 20150717
  2. ALEMTUZUMAB [Suspect]
     Active Substance: ALEMTUZUMAB
     Dosage: 12 MG,QD
     Route: 041
     Dates: start: 20160718, end: 20160720

REACTIONS (8)
  - Immune thrombocytopenic purpura [Recovered/Resolved]
  - Immune thrombocytopenic purpura [Recovered/Resolved]
  - Immune thrombocytopenic purpura [Recovered/Resolved]
  - Immune thrombocytopenic purpura [Recovered/Resolved]
  - Thrombocytopenia [Recovered/Resolved]
  - Thyroid disorder [Recovered/Resolved]
  - Neutropenia [Recovered/Resolved]
  - Basedow^s disease [Recovered/Resolved]

NARRATIVE: CASE EVENT DATE: 20170524
